FAERS Safety Report 6745462-X (Version None)
Quarter: 2010Q2

REPORT INFORMATION
  Report Type: 
  Country: None (occurrence: None)
  Receive Date: 20100528
  Receipt Date: 20100519
  Transmission Date: 20101027
  Serious: Yes (Hospitalization)
  Sender: FDA-Public Use
  Company Number: AU-ELI_LILLY_AND_COMPANY-AU201005005260

PATIENT
  Sex: Female
  Weight: 58 kg

DRUGS (4)
  1. GEMCITABINE HYDROCHLORIDE [Suspect]
     Indication: NON-SMALL CELL LUNG CANCER
     Dosage: 1000 MG/M2, DAY 1 AND DAY 8 EVERY THREE WEEKS
     Route: 042
     Dates: start: 20100218
  2. CETUXIMAB [Suspect]
     Indication: NON-SMALL CELL LUNG CANCER
     Dosage: 250 MG/M2, WEEKLY (1/W)
     Dates: start: 20100218
  3. CARBOPLATIN [Suspect]
     Indication: NON-SMALL CELL LUNG CANCER
     Dosage: 5 D/F, DAY 1 EVERY THREE WEEKS
     Route: 042
     Dates: start: 20100218
  4. CARBOPLATIN [Suspect]
     Dosage: 4 D/F, UNKNOWN
     Route: 042

REACTIONS (2)
  - PANCYTOPENIA [None]
  - THROMBOPHLEBITIS [None]
